FAERS Safety Report 9394190 (Version 1)
Quarter: 2013Q3

REPORT INFORMATION
  Report Type: Spontaneous
  Country: FR (occurrence: FR)
  Receive Date: 20130711
  Receipt Date: 20130711
  Transmission Date: 20140515
  Serious: Yes (Hospitalization)
  Sender: FDA-Public Use
  Company Number: FR-ROCHE-1245056

PATIENT
  Age: 40 Year
  Sex: Male

DRUGS (10)
  1. CELLCEPT [Suspect]
     Indication: PROPHYLAXIS AGAINST TRANSPLANT REJECTION
     Route: 065
     Dates: start: 201212, end: 20130529
  2. ROVALCYTE [Concomitant]
     Route: 065
  3. ADVAGRAF [Concomitant]
     Route: 065
  4. SOLUPRED (FRANCE) [Concomitant]
     Route: 065
  5. AVLOCARDYL [Concomitant]
     Route: 065
  6. BACTRIM FORTE [Concomitant]
     Route: 065
  7. INEXIUM [Concomitant]
     Route: 065
  8. AZACTAM [Concomitant]
     Route: 065
  9. OFLOCET (FRANCE) [Concomitant]
     Route: 065
  10. ACUPAN [Concomitant]
     Route: 065

REACTIONS (3)
  - Agranulocytosis [Recovered/Resolved]
  - Anaemia [Recovered/Resolved]
  - Thrombocytopenia [Recovered/Resolved]
